FAERS Safety Report 10085724 (Version 1)
Quarter: 2014Q2

REPORT INFORMATION
  Report Type: Spontaneous
  Country: US (occurrence: US)
  Receive Date: 20140418
  Receipt Date: 20140418
  Transmission Date: 20141212
  Serious: No
  Sender: FDA-Public Use
  Company Number: US-TEVA-468566USA

PATIENT
  Age: 42 Year
  Sex: Female

DRUGS (1)
  1. SYNRIBO [Suspect]

REACTIONS (3)
  - White blood cell count increased [Unknown]
  - Drug resistance [Unknown]
  - Drug ineffective [Unknown]
